FAERS Safety Report 5376199-X (Version None)
Quarter: 2007Q2

REPORT INFORMATION
  Report Type: 
  Country: None (occurrence: None)
  Receive Date: 20070628
  Receipt Date: 20070625
  Transmission Date: 20071010
  Serious: Yes (Life-Threatening)
  Sender: FDA-Public Use
  Company Number: 6034870

PATIENT
  Age: 85 Year
  Sex: Female

DRUGS (6)
  1. BISOPROLOL FUMARATE [Suspect]
     Indication: DRUG USE FOR UNKNOWN INDICATION
     Dosage: 2,5 MG (1,25 MG,2 IN 1 D),ORAL
     Route: 054
     Dates: end: 20070509
  2. PRAVASTATIN [Suspect]
     Indication: DRUG USE FOR UNKNOWN INDICATION
     Dosage: 1 DOSAGE FORMS (1 DOSAGE FORMS,1 D),ORAL
     Route: 048
     Dates: end: 20070509
  3. RAMIPRIL [Suspect]
     Indication: DRUG USE FOR UNKNOWN INDICATION
     Dosage: 2,5 MG (2,5 MG,1 D),ORAL
     Route: 048
     Dates: end: 20070509
  4. METFORMIN HCL [Concomitant]
  5. PREVISCAN(TABLET) (FLUINDIONE) [Concomitant]
  6. LASIX [Concomitant]

REACTIONS (12)
  - ACUTE PULMONARY OEDEMA [None]
  - BUNDLE BRANCH BLOCK LEFT [None]
  - BUNDLE BRANCH BLOCK RIGHT [None]
  - FALL [None]
  - GRAND MAL CONVULSION [None]
  - HYPERKALAEMIA [None]
  - HYPERTROPHIC CARDIOMYOPATHY [None]
  - LUNG DISORDER [None]
  - MALAISE [None]
  - RENAL FAILURE ACUTE [None]
  - SINOATRIAL BLOCK [None]
  - SINUS BRADYCARDIA [None]
